FAERS Safety Report 8020718-1 (Version None)
Quarter: 2012Q1

REPORT INFORMATION
  Report Type: 
  Country: None (occurrence: None)
  Receive Date: 20120104
  Receipt Date: 20111214
  Transmission Date: 20120608
  Serious: Yes (Death, Other)
  Sender: FDA-Public Use
  Company Number: US-PAR PHARMACEUTICAL, INC-2011SCPR003763

PATIENT
  Age: 41 Year
  Sex: Female

DRUGS (3)
  1. TRAMADOL HCL [Suspect]
     Indication: FIBROMYALGIA
     Dosage: UNK, UNKNOWN
     Route: 048
  2. ACETAMINOPHEN AND HYDROCODONE BITARTRATE [Concomitant]
     Indication: PRODUCT USED FOR UNKNOWN INDICATION
     Dosage: UNK, UNKNOWN
     Route: 065
  3. PREGABALIN [Concomitant]
     Indication: FIBROMYALGIA
     Dosage: UNK, UNKNOWN
     Route: 065

REACTIONS (10)
  - PULSELESS ELECTRICAL ACTIVITY [None]
  - TRANSAMINASES INCREASED [None]
  - CARDIO-RESPIRATORY ARREST [None]
  - TOXICITY TO VARIOUS AGENTS [None]
  - ACIDOSIS [None]
  - COMPLETED SUICIDE [None]
  - DEATH [None]
  - HYPOXIC-ISCHAEMIC ENCEPHALOPATHY [None]
  - BLOOD GLUCOSE INCREASED [None]
  - CARDIOMEGALY [None]
